FAERS Safety Report 4734804-2 (Version None)
Quarter: 2005Q3

REPORT INFORMATION
  Report Type: 
  Country: None (occurrence: None)
  Receive Date: 20050729
  Receipt Date: 20050708
  Transmission Date: 20060218
  Serious: Yes (Other)
  Sender: FDA-Public Use
  Company Number: USA0507102636

PATIENT
  Sex: Female

DRUGS (2)
  1. CYMBALTA [Suspect]
     Indication: DEPRESSION
     Dosage: 60 MG
  2. ZELNORM [Concomitant]

REACTIONS (2)
  - BLOOD ANTIDIURETIC HORMONE INCREASED [None]
  - HYPONATRAEMIA [None]
